FAERS Safety Report 15205046 (Version 1)
Quarter: 2018Q3

REPORT INFORMATION
  Report Type: Spontaneous
  Country: US (occurrence: US)
  Receive Date: 20180726
  Receipt Date: 20180726
  Transmission Date: 20181010
  Serious: No
  Sender: FDA-Public Use
  Company Number: US-GALDERMA-US18002292

PATIENT
  Sex: Female

DRUGS (1)
  1. METROGEL [Suspect]
     Active Substance: METRONIDAZOLE
     Indication: PRODUCT USED FOR UNKNOWN INDICATION
     Dosage: 1%
     Route: 061
     Dates: start: 2008

REACTIONS (2)
  - Condition aggravated [Unknown]
  - Intentional product use issue [Unknown]
